FAERS Safety Report 14503194 (Version 3)
Quarter: 2018Q3

REPORT INFORMATION
  Report Type: Spontaneous
  Country: US (occurrence: US)
  Receive Date: 20180208
  Receipt Date: 20180704
  Transmission Date: 20181010
  Serious: No
  Sender: FDA-Public Use
  Company Number: US-PFIZER INC-2018052783

PATIENT
  Age: 68 Year
  Sex: Female

DRUGS (1)
  1. XALKORI [Suspect]
     Active Substance: CRIZOTINIB
     Indication: LUNG NEOPLASM MALIGNANT
     Dosage: 250 UG, (1 A DAY, 2 A DAY, EVERY 6 HOUR)
     Dates: start: 201303

REACTIONS (3)
  - Confusional state [Unknown]
  - Diarrhoea [Unknown]
  - Constipation [Unknown]
